FAERS Safety Report 21533424 (Version 4)
Quarter: 2022Q4

REPORT INFORMATION
  Report Type: Report from Study
  Country: US (occurrence: US)
  Receive Date: 20221101
  Receipt Date: 20221218
  Transmission Date: 20230113
  Serious: No
  Sender: FDA-Public Use
  Company Number: US-NOVARTISTESTPH-NVSC2022US245823

PATIENT
  Sex: Female

DRUGS (2)
  1. COSENTYX [Suspect]
     Active Substance: SECUKINUMAB
     Indication: Psoriasis
     Dosage: 300 MG, QW (9300MG Q WEEKLY X 5 WEEKS THEN Q 4 WEEKS)
     Route: 058
     Dates: start: 202210
  2. COSENTYX [Suspect]
     Active Substance: SECUKINUMAB
     Dosage: 300 MG, QMO
     Route: 058

REACTIONS (5)
  - Cough [Recovering/Resolving]
  - Nasal congestion [Recovering/Resolving]
  - Dermatitis acneiform [Not Recovered/Not Resolved]
  - Pain [Unknown]
  - Urticaria [Recovered/Resolved]
